FAERS Safety Report 9348679 (Version 1)
Quarter: 2013Q2

REPORT INFORMATION
  Report Type: Spontaneous
  Country: US (occurrence: US)
  Receive Date: 20130614
  Receipt Date: 20130614
  Transmission Date: 20140414
  Serious: No
  Sender: FDA-Public Use
  Company Number: US-JNJFOC-20130603777

PATIENT
  Age: 80 Year
  Sex: Female
  Weight: 68.95 kg

DRUGS (2)
  1. MS PEPCID AC [Suspect]
     Route: 048
  2. MS PEPCID AC [Suspect]
     Indication: DYSPEPSIA
     Dosage: 1 TABLET DAILY
     Route: 048
     Dates: start: 20130415

REACTIONS (2)
  - Helicobacter infection [Unknown]
  - Incorrect drug administration duration [Unknown]
